FAERS Safety Report 10068420 (Version 2)
Quarter: 2014Q2

REPORT INFORMATION
  Report Type: Spontaneous
  Country: US (occurrence: US)
  Receive Date: 20140409
  Receipt Date: 20140423
  Transmission Date: 20141212
  Serious: Yes (Hospitalization)
  Sender: FDA-Public Use
  Company Number: US-LUNDBECK-DKLU1098944

PATIENT
  Age: 70 Year
  Sex: Female

DRUGS (13)
  1. ONFI [Suspect]
     Indication: EPILEPSY
     Route: 048
     Dates: start: 20130502
  2. ONFI [Suspect]
     Route: 048
     Dates: start: 20130502
  3. ONFI [Suspect]
     Dates: start: 20130808
  4. CHANTIX [Suspect]
     Indication: SMOKING CESSATION THERAPY
     Dates: end: 20130629
  5. DEPAKOTE ER [Concomitant]
     Indication: EPILEPSY
     Dates: start: 20120727
  6. COUMADIN [Concomitant]
     Indication: PRODUCT USED FOR UNKNOWN INDICATION
     Dates: start: 2009
  7. COUMADIN [Concomitant]
     Dates: start: 2009
  8. ASPIRIN [Concomitant]
     Indication: PRODUCT USED FOR UNKNOWN INDICATION
     Dates: start: 2009
  9. SINGULAIR [Concomitant]
     Indication: ASTHMA
     Dates: start: 2008
  10. DOCUSATE SODIUM [Concomitant]
     Indication: CONSTIPATION
     Dates: start: 2009
  11. PROMETHAZINE [Concomitant]
     Indication: NAUSEA
     Dates: start: 2009
  12. OXYCODONE APAP [Concomitant]
     Indication: BACK PAIN
     Dosage: 5/325 MG
     Dates: start: 2010
  13. LEVOTHYROXINE [Concomitant]
     Indication: HYPERTHYROIDISM
     Dates: start: 20130619

REACTIONS (1)
  - Gastroenteritis viral [Recovered/Resolved]
